FAERS Safety Report 5983924-3 (Version None)
Quarter: 2008Q4

REPORT INFORMATION
  Report Type: 
  Country: None (occurrence: None)
  Receive Date: 20081208
  Receipt Date: 20081125
  Transmission Date: 20090506
  Serious: Yes (Death, Other)
  Sender: FDA-Public Use
  Company Number: FR-ROCHE-599503

PATIENT
  Sex: Female

DRUGS (24)
  1. CELLCEPT [Suspect]
     Indication: DRUG USE FOR UNKNOWN INDICATION
     Dosage: AUC: 30.3
     Route: 042
     Dates: start: 20070328
  2. CELLCEPT [Interacting]
     Dosage: AUC: 26
     Route: 042
     Dates: start: 20070410
  3. CELLCEPT [Interacting]
     Dosage: AUC: 20.3
     Route: 042
     Dates: start: 20070416, end: 20070525
  4. CIPROFLOXACIN HYDROCHLORIDE [Interacting]
     Indication: DRUG USE FOR UNKNOWN INDICATION
     Dosage: STRENGTH: 400 MG/200 ML FREQUENCY: QD
     Route: 042
     Dates: start: 20070331, end: 20070407
  5. BACTRIM [Concomitant]
     Route: 042
     Dates: start: 20070402
  6. CANCIDAS [Concomitant]
     Dosage: FREQUENCY: QD
     Route: 042
     Dates: start: 20070403
  7. LASIX [Concomitant]
     Dosage: FREQUENCY: QD STRENGTH: 20
     Route: 042
     Dates: start: 20070328
  8. SOLUDACTONE [Concomitant]
     Route: 042
     Dates: start: 20070328
  9. SOLU-MEDROL [Concomitant]
     Dosage: FREQUENCY: QD
     Dates: start: 20080328
  10. CYCLOSPORINE [Concomitant]
     Dates: start: 20050701
  11. ENDOXAN [Concomitant]
  12. BUSULFEX [Concomitant]
     Dosage: DOSE: 4 DOSE PER DAY DURING 4 DAYS
  13. LYMPHOGLOBULINE [Concomitant]
  14. DEFIBROTIDE [Concomitant]
  15. TAZOCILLINE [Concomitant]
  16. AMIKLIN [Concomitant]
  17. VANCOMYCIN [Concomitant]
  18. GENTALLINE [Concomitant]
  19. FUNGIZONE [Concomitant]
  20. URSOLVAN [Concomitant]
  21. REMICADE [Concomitant]
  22. ZENAPAX [Concomitant]
  23. PROGRAF [Concomitant]
  24. METHOTREXATE [Concomitant]

REACTIONS (3)
  - DRUG INTERACTION [None]
  - DRUG LEVEL DECREASED [None]
  - GRAFT VERSUS HOST DISEASE [None]
